FAERS Safety Report 8135751-9 (Version None)
Quarter: 2012Q1

REPORT INFORMATION
  Report Type: 
  Country: None (occurrence: None)
  Receive Date: 20120210
  Receipt Date: 20120125
  Transmission Date: 20120608
  Serious: Yes (Death)
  Sender: FDA-Public Use
  Company Number: OPIR20120005

PATIENT
  Age: 66 Year
  Sex: Male

DRUGS (6)
  1. MIRTAZAPINE [Suspect]
     Indication: DRUG ABUSE
  2. HYDROCODONE BITARTRATE + ACETAMINOPHEN [Suspect]
     Indication: DRUG ABUSE
  3. DIAZEPAM [Suspect]
     Indication: DRUG ABUSE
  4. OPANA [Suspect]
     Indication: DRUG ABUSE
  5. TRAZODONE HYDROCHLORIDE [Suspect]
     Indication: DRUG ABUSE
  6. METHAMPHETAMINE HYDROCHLORIDE [Suspect]
     Indication: DRUG ABUSE

REACTIONS (2)
  - RESPIRATORY ARREST [None]
  - CARDIAC ARREST [None]
